FAERS Safety Report 9252711 (Version 1)
Quarter: 2013Q1

REPORT INFORMATION
  Report Type: Spontaneous
  Country: US (occurrence: None)
  Receive Date: 20130305
  Receipt Date: 20130305
  Transmission Date: 20140127
  Serious: Yes (Hospitalization, Other)
  Sender: FDA-Public Use
  Company Number: 163-21880-12091308

PATIENT
  Age: 78 Year
  Sex: Male
  Weight: 94.8 kg

DRUGS (8)
  1. REVLIMID [Suspect]
     Indication: PLASMA CELL MYELOMA
     Dosage: 10 MG, 21 IN 21 D, PO
     Dates: start: 20120608
  2. METOPROLOL (METOPROLOL) [Concomitant]
  3. DEXAMETHASONE (DEXAMETHASONE) [Concomitant]
  4. FAMVIR (FAMCICLOVIR) [Concomitant]
  5. ALLOPURINOL [Concomitant]
  6. VITAMIN D (ERGOCALCIFEROL) [Concomitant]
  7. CALCIUM + VITAMIN D (LEKOVIT CA) [Concomitant]
  8. BACTRIM DS (BACTRIM) [Concomitant]

REACTIONS (2)
  - Transient ischaemic attack [None]
  - Platelet count decreased [None]
